FAERS Safety Report 13188166 (Version 3)
Quarter: 2017Q1

REPORT INFORMATION
  Report Type: Spontaneous
  Country: US (occurrence: US)
  Receive Date: 20170206
  Receipt Date: 20170224
  Transmission Date: 20170428
  Serious: Yes (Other)
  Sender: FDA-Public Use
  Company Number: PHEH2017US003436

PATIENT
  Age: 72 Year
  Sex: Male
  Weight: 79.74 kg

DRUGS (17)
  1. ENTRESTO [Suspect]
     Active Substance: SACUBITRIL\VALSARTAN
     Dosage: 100 MG (49/51 MG), BID
     Route: 048
     Dates: start: 20160826, end: 20160927
  2. ASPIRIN. [Concomitant]
     Active Substance: ASPIRIN
     Indication: MYOCARDIAL INFARCTION
     Dosage: 1 DF, QD
     Route: 048
     Dates: start: 20100202
  3. COREG [Concomitant]
     Active Substance: CARVEDILOL
     Indication: CARDIAC FAILURE
     Dosage: 1 DF, BID
     Route: 048
  4. LASIX [Concomitant]
     Active Substance: FUROSEMIDE
     Indication: DIURETIC THERAPY
  5. NEURONTIN [Concomitant]
     Active Substance: GABAPENTIN
     Indication: INTERMITTENT CLAUDICATION
     Dosage: 600 MG, QHS
     Route: 048
  6. XENICAL [Concomitant]
     Active Substance: ORLISTAT
     Indication: WEIGHT DECREASED
     Dosage: 1 DF, QD
     Route: 048
  7. LANTUS [Concomitant]
     Active Substance: INSULIN GLARGINE
     Indication: DIABETES MELLITUS
     Dosage: 70 U, QHS
     Route: 058
  8. HUMALOG [Concomitant]
     Active Substance: INSULIN LISPRO
     Indication: DIABETES MELLITUS
     Dosage: 115 U (15 UNITS AM / 50 UNITS NOON / 50 UNITS AT NIGHT), QD
     Route: 058
  9. FERROUS SULFATE. [Concomitant]
     Active Substance: FERROUS SULFATE
     Indication: PRODUCT USED FOR UNKNOWN INDICATION
     Dosage: 1 DF(65 MG IRON), QD
     Route: 048
  10. NOVOLOG [Concomitant]
     Active Substance: INSULIN ASPART
     Indication: DIABETES MELLITUS
     Dosage: 115 U (15 UNITS AM / 50 UNITS NOON / 50 UNITS AT NIGHT), QD
     Route: 058
  11. ASPIRIN. [Concomitant]
     Active Substance: ASPIRIN
     Indication: CEREBROVASCULAR ACCIDENT
  12. ENTRESTO [Suspect]
     Active Substance: SACUBITRIL\VALSARTAN
     Indication: CARDIAC FAILURE CHRONIC
     Dosage: 50 MG (24/26 MG), BID
     Route: 048
     Dates: start: 20160721, end: 20160826
  13. LASIX [Concomitant]
     Active Substance: FUROSEMIDE
     Indication: CARDIAC FAILURE
     Dosage: 2 DF, QD
     Route: 048
  14. PRILOSEC [Concomitant]
     Active Substance: OMEPRAZOLE MAGNESIUM
     Indication: GASTROOESOPHAGEAL REFLUX DISEASE
     Dosage: 1 DF, QD
     Route: 048
  15. ZOCOR [Concomitant]
     Active Substance: SIMVASTATIN
     Indication: HYPERLIPIDAEMIA
     Dosage: 1 DF, QHS
     Route: 048
  16. ENTRESTO [Suspect]
     Active Substance: SACUBITRIL\VALSARTAN
     Dosage: 50 MG(24/26 MG), BID
     Route: 048
     Dates: start: 20160927
  17. SPIRONOLACTONE. [Concomitant]
     Active Substance: SPIRONOLACTONE
     Indication: CARDIAC FAILURE
     Dosage: 1 DF, QD
     Route: 048
     Dates: start: 20170126

REACTIONS (21)
  - Pedal pulse decreased [Unknown]
  - Arthralgia [Unknown]
  - Cardiac murmur [Unknown]
  - Concomitant disease aggravated [Unknown]
  - Gait disturbance [Unknown]
  - Skin warm [Unknown]
  - Atrioventricular block second degree [Unknown]
  - Acute kidney injury [Recovering/Resolving]
  - Hypokinesia [Unknown]
  - Dyspnoea exertional [Recovering/Resolving]
  - Blood glucose increased [Unknown]
  - Impaired quality of life [Unknown]
  - Oedema [Unknown]
  - Device malfunction [Unknown]
  - Pollakiuria [Recovered/Resolved]
  - Chronic kidney disease [Unknown]
  - Oedema peripheral [Unknown]
  - Localised oedema [Unknown]
  - Back pain [Unknown]
  - Muscle oedema [Unknown]
  - Dry skin [Unknown]

NARRATIVE: CASE EVENT DATE: 20160826
